FAERS Safety Report 8797541 (Version 2)
Quarter: 2013Q1

REPORT INFORMATION
  Report Type: Spontaneous
  Country: US (occurrence: US)
  Receive Date: 20120920
  Receipt Date: 20130130
  Transmission Date: 20140127
  Serious: Yes (Other)
  Sender: FDA-Public Use
  Company Number: PHEH2012US015072

PATIENT
  Age: 49 Year
  Sex: Female
  Weight: 68.48 kg

DRUGS (3)
  1. GILENYA [Suspect]
     Indication: MULTIPLE SCLEROSIS
     Dosage: 0.5 MG, QD
     Route: 048
     Dates: start: 20120125, end: 20120709
  2. SYNTHROID [Concomitant]
     Dosage: 25 UG, QD
     Route: 048
  3. CENESTIN [Concomitant]
     Dosage: 0.625 MG, QD
     Route: 048

REACTIONS (3)
  - White blood cell count decreased [Recovered/Resolved]
  - Agranulocytosis [Recovering/Resolving]
  - Neutropenia [Recovered/Resolved]
